FAERS Safety Report 9175712 (Version 1)
Quarter: 2012Q4

REPORT INFORMATION
  Report Type: 
  Country: US (occurrence: US)
  Receive Date: 20120911
  Receipt Date: 20120911
  Transmission Date: 20130627
  Serious: Yes (Hospitalization, Other)
  Sender: FDA-Public Use
  Company Number: US-RB-044121-12

PATIENT
  Age: 44 Year
  Sex: Female

DRUGS (1)
  1. SUBOXONE TABLET [Suspect]
     Indication: DRUG DEPENDENCE
     Route: 060
     Dates: start: 2007, end: 2009

REACTIONS (3)
  - Gallbladder disorder [Recovered/Resolved]
  - Appendix disorder [Recovered/Resolved]
  - Ovarian disorder [Unknown]
